FAERS Safety Report 6135159-1 (Version None)
Quarter: 2009Q1

REPORT INFORMATION
  Report Type: 
  Country: None (occurrence: None)
  Receive Date: 20090327
  Receipt Date: 20090320
  Transmission Date: 20090719
  Serious: Yes (Other)
  Sender: FDA-Public Use
  Company Number: HQWYE590826AUG04

PATIENT
  Sex: Female

DRUGS (6)
  1. PREMPRO [Suspect]
     Indication: HORMONE REPLACEMENT THERAPY
  2. DEMULEN 1/35-21 [Suspect]
     Dosage: NOT SPECIFIED
  3. LOESTRIN 1.5/30 [Suspect]
  4. PROMETRIUM [Suspect]
     Dosage: NOT SPECIFIED
  5. PREMARIN [Suspect]
  6. NORETHINDRONE [Suspect]

REACTIONS (1)
  - BREAST CANCER METASTATIC [None]
